FAERS Safety Report 7991334-2 (Version None)
Quarter: 2011Q4

REPORT INFORMATION
  Report Type: 
  Country: None (occurrence: None)
  Receive Date: 20111219
  Receipt Date: 20111209
  Transmission Date: 20120403
  Serious: Yes (Hospitalization)
  Sender: FDA-Public Use
  Company Number: JP-EISAI INC-E7389-01623-CLI-JP

PATIENT
  Sex: Female
  Weight: 40 kg

DRUGS (26)
  1. MEDROXYPROGESTERONE ACETATE [Concomitant]
     Indication: BREAST CANCER RECURRENT
     Dates: start: 20100603
  2. PACIF [Concomitant]
     Route: 048
  3. CELESTAMINE TAB [Concomitant]
     Indication: PROPHYLAXIS
     Route: 048
  4. HALAVEN [Suspect]
     Indication: METASTASES TO LIVER
  5. FUROSEMIDE [Concomitant]
  6. ELIETEN [Concomitant]
     Indication: PROPHYLAXIS
     Route: 048
  7. HALAVEN [Suspect]
     Indication: METASTASES TO BONE
  8. AZUNOL [Concomitant]
     Indication: PROPHYLAXIS
  9. CODEINE PHOSPHATE HYDRATE [Concomitant]
     Route: 048
  10. LOXOMARIN [Concomitant]
     Route: 048
  11. HALAVEN [Suspect]
     Indication: METASTASES TO LUNG
  12. MEDROXYPROGESTERONE ACETATE [Concomitant]
  13. GLYCEOL [Concomitant]
  14. MAGNESIUM SULFATE [Concomitant]
     Indication: CONSTIPATION
  15. FAMOTIDINE [Concomitant]
     Indication: PROPHYLAXIS
  16. NEOPHAGEN [Concomitant]
     Indication: PROPHYLAXIS
  17. GRANISETRON [Concomitant]
     Indication: PROPHYLAXIS
  18. HALAVEN [Suspect]
     Indication: BREAST CANCER RECURRENT
     Dates: start: 20110804
  19. HALAVEN [Suspect]
  20. DECADRON [Concomitant]
     Indication: PROPHYLAXIS
  21. ZOMETA [Concomitant]
     Indication: METASTASES TO BONE
  22. PRECOAT [Concomitant]
     Route: 048
  23. TPN ELECTROLYTES IN PLASTIC CONTAINER [Concomitant]
  24. LANSOPRAZOLE [Concomitant]
     Indication: PROPHYLAXIS
     Route: 048
  25. PHENYTOIN SODIUM CAP [Concomitant]
     Indication: PROPHYLAXIS
     Route: 048
  26. INKALBON [Concomitant]

REACTIONS (5)
  - FEBRILE NEUTROPENIA [None]
  - LYMPHOPENIA [None]
  - LEUKOPENIA [None]
  - NEUTROPENIA [None]
  - PNEUMONIA [None]
